FAERS Safety Report 12473874 (Version 1)
Quarter: 2016Q2

REPORT INFORMATION
  Report Type: Spontaneous
  Country: US (occurrence: US)
  Receive Date: 20160616
  Receipt Date: 20160616
  Transmission Date: 20160815
  Serious: No
  Sender: FDA-Public Use
  Company Number: US-PFIZER INC-2016291792

PATIENT
  Age: 30 Year
  Sex: Male
  Weight: 89.81 kg

DRUGS (1)
  1. VIAGRA [Suspect]
     Active Substance: SILDENAFIL CITRATE
     Indication: SEXUAL DYSFUNCTION
     Dosage: 50 MG, SINGLE
     Route: 048
     Dates: start: 20160607

REACTIONS (4)
  - Painful erection [Unknown]
  - Intentional product misuse [Unknown]
  - Ejaculation disorder [Unknown]
  - Erection increased [Unknown]

NARRATIVE: CASE EVENT DATE: 20160607
